APPROVED DRUG PRODUCT: THEO-24
Active Ingredient: THEOPHYLLINE
Strength: 400MG
Dosage Form/Route: CAPSULE, EXTENDED RELEASE;ORAL
Application: A087943 | Product #004
Applicant: ENDO OPERATIONS LTD
Approved: Feb 28, 1992 | RLD: No | RS: Yes | Type: RX